FAERS Safety Report 6524303-X (Version None)
Quarter: 2009Q4

REPORT INFORMATION
  Report Type: 
  Country: None (occurrence: None)
  Receive Date: 20091231
  Receipt Date: 20091221
  Transmission Date: 20100525
  Serious: Yes (Other)
  Sender: FDA-Public Use
  Company Number: JP-MERCK-0908USA04215

PATIENT
  Age: 33 Year
  Sex: Male
  Weight: 79 kg

DRUGS (2)
  1. PROPECIA [Suspect]
     Indication: ANDROGENETIC ALOPECIA
     Route: 048
     Dates: start: 20061005, end: 20071120
  2. PROPECIA [Suspect]
     Route: 048
     Dates: start: 20071121, end: 20081114

REACTIONS (1)
  - HEPATIC FUNCTION ABNORMAL [None]
